FAERS Safety Report 23113408 (Version 2)
Quarter: 2023Q4

REPORT INFORMATION
  Report Type: Report from Study
  Country: US (occurrence: US)
  Receive Date: 20231027
  Receipt Date: 20231207
  Transmission Date: 20240109
  Serious: Yes (Other)
  Sender: FDA-Public Use
  Company Number: US-BoehringerIngelheim-2022-BI-146494

PATIENT
  Age: 83 Year
  Sex: Male
  Weight: 66.67 kg

DRUGS (4)
  1. OFEV [Suspect]
     Active Substance: NINTEDANIB
     Indication: Idiopathic pulmonary fibrosis
     Route: 048
     Dates: start: 20220127, end: 20230318
  2. OFEV [Suspect]
     Active Substance: NINTEDANIB
     Route: 048
     Dates: start: 20211223, end: 20221221
  3. OFEV [Suspect]
     Active Substance: NINTEDANIB
     Route: 048
     Dates: start: 20230106
  4. OFEV [Suspect]
     Active Substance: NINTEDANIB
     Route: 048

REACTIONS (16)
  - Cerebrovascular accident [Recovering/Resolving]
  - Medical device implantation [Unknown]
  - Pyrexia [Recovering/Resolving]
  - Nasal congestion [Recovering/Resolving]
  - Productive cough [Recovering/Resolving]
  - Multiple allergies [Unknown]
  - Dyspnoea [Not Recovered/Not Resolved]
  - Diarrhoea [Recovering/Resolving]
  - Dental caries [Unknown]
  - Vomiting [Not Recovered/Not Resolved]
  - Diarrhoea [Recovered/Resolved]
  - Cough [Unknown]
  - Fatigue [Unknown]
  - Depression [Unknown]
  - Dyspnoea exertional [Unknown]
  - Nausea [Recovered/Resolved]

NARRATIVE: CASE EVENT DATE: 20220301
